FAERS Safety Report 14075761 (Version 1)
Quarter: 2017Q4

REPORT INFORMATION
  Report Type: Spontaneous
  Country: US (occurrence: US)
  Receive Date: 20171010
  Receipt Date: 20171010
  Transmission Date: 20180321
  Serious: No
  Sender: FDA-Public Use
  Company Number: US-MYLANLABS-2016M1043468

PATIENT
  Sex: Female

DRUGS (2)
  1. ASKINA DERM FILM DRESSING [Suspect]
     Active Substance: POLYURETHANE
     Dosage: UNK
  2. FENTANYL TRANSDERMAL SYSTEM [Concomitant]
     Active Substance: FENTANYL
     Indication: PAIN
     Dosage: 25 ?G, QH
     Route: 062

REACTIONS (1)
  - Application site irritation [Recovered/Resolved]
